FAERS Safety Report 7751463-5 (Version None)
Quarter: 2011Q3

REPORT INFORMATION
  Report Type: 
  Country: None (occurrence: None)
  Receive Date: 20110914
  Receipt Date: 20110902
  Transmission Date: 20111222
  Serious: Yes (Other)
  Sender: FDA-Public Use
  Company Number: PHFR2010IE05566

PATIENT
  Sex: Male

DRUGS (7)
  1. DUPHALAC [Concomitant]
     Indication: CONSTIPATION
     Dosage: 15 MG, UNK
     Route: 048
  2. CLOZAPINE [Suspect]
     Indication: SCHIZOPHRENIA
     Route: 048
     Dates: start: 19931201
  3. ZOLPIDEM [Concomitant]
     Dosage: 10 MG, UNK
     Route: 048
  4. VALPROIC ACID [Concomitant]
     Dosage: 400 MG, BID
     Route: 048
  5. GLUCOPHAGE [Concomitant]
     Indication: DIABETES MELLITUS
     Dosage: 500 MG, BID
     Route: 048
  6. CLOZAPINE [Suspect]
     Dosage: 250 MG MANE 450 MG NOCTE
     Route: 048
     Dates: start: 20010701
  7. COZAAR [Concomitant]
     Indication: BLOOD PRESSURE
     Dosage: 50 MG, UNK
     Route: 048

REACTIONS (4)
  - LYMPHOCYTE MORPHOLOGY ABNORMAL [None]
  - WHITE BLOOD CELL COUNT INCREASED [None]
  - LYMPHOCYTE COUNT INCREASED [None]
  - PLATELET COUNT DECREASED [None]
